FAERS Safety Report 21269143 (Version 1)
Quarter: 2022Q3

REPORT INFORMATION
  Report Type: Spontaneous
  Country: US (occurrence: US)
  Receive Date: 20220830
  Receipt Date: 20220830
  Transmission Date: 20221026
  Serious: Yes (Other)
  Sender: FDA-Public Use
  Company Number: US-JNJFOC-20220854524

PATIENT

DRUGS (1)
  1. SPRAVATO [Suspect]
     Active Substance: ESKETAMINE
     Indication: Product used for unknown indication

REACTIONS (7)
  - Suicidal ideation [Unknown]
  - Hyperhidrosis [Unknown]
  - Anxiety [Unknown]
  - Depression [Unknown]
  - Therapy cessation [Unknown]
  - Back pain [Unknown]
  - Restless legs syndrome [Unknown]
